FAERS Safety Report 4912477-3 (Version None)
Quarter: 2006Q1

REPORT INFORMATION
  Report Type: 
  Country: None (occurrence: None)
  Receive Date: 20060215
  Receipt Date: 20050428
  Transmission Date: 20060701
  Serious: No
  Sender: FDA-Public Use
  Company Number: US-GLAXOSMITHKLINE-A0556202A

PATIENT
  Age: 52 Year
  Sex: Female

DRUGS (9)
  1. VALACYCLOVIR HCL [Suspect]
     Dosage: 500MG TWICE PER DAY
     Route: 048
     Dates: start: 20040301
  2. NORVASC [Concomitant]
  3. VITAMIN E [Concomitant]
  4. OMEGA 3 [Concomitant]
  5. ASCORBIC ACID [Concomitant]
  6. CALCIUM GLUCONATE [Concomitant]
  7. ALOE VERA [Concomitant]
  8. TOPROL [Concomitant]
  9. PROTONIX [Concomitant]
     Indication: GASTRITIS
     Dosage: 40MG PER DAY

REACTIONS (1)
  - GASTRITIS [None]
